FAERS Safety Report 9040831 (Version 3)
Quarter: 2013Q2

REPORT INFORMATION
  Report Type: Report from Study
  Country: KR (occurrence: KR)
  Receive Date: 20130129
  Receipt Date: 20130424
  Transmission Date: 20140414
  Serious: Yes (Hospitalization, Other)
  Sender: FDA-Public Use
  Company Number: KR-ABBOTT-13P-090-1040463-00

PATIENT
  Age: 62 Year
  Sex: Male
  Weight: 49 kg

DRUGS (24)
  1. KALETRA [Suspect]
     Indication: HIV INFECTION
     Route: 048
     Dates: start: 20091102
  2. 3TC/AZT [Concomitant]
     Indication: ANTIRETROVIRAL THERAPY
     Dates: start: 20091102
  3. COMBIVIR [Concomitant]
     Indication: HIV INFECTION
     Route: 048
     Dates: start: 20091102
  4. UCERAX [Concomitant]
     Indication: SKIN DISORDER
     Route: 048
     Dates: start: 20091102
  5. UCERAX [Concomitant]
     Indication: PROPHYLAXIS
  6. SOLONDO [Concomitant]
     Indication: SKIN DISORDER
     Route: 048
     Dates: start: 20091102, end: 20121116
  7. SOLONDO [Concomitant]
     Indication: PROPHYLAXIS
  8. TYLENOL ER [Concomitant]
     Indication: NASOPHARYNGITIS
     Route: 048
     Dates: start: 20091214, end: 20101006
  9. TYLENOL ER [Concomitant]
     Indication: PROPHYLAXIS
  10. PSEUDAFED [Concomitant]
     Indication: NASOPHARYNGITIS
     Route: 048
     Dates: start: 20091214, end: 20091221
  11. PSEUDAFED [Concomitant]
     Indication: PROPHYLAXIS
     Route: 048
     Dates: start: 20101124, end: 20101130
  12. LEVOTRON [Concomitant]
     Indication: NASOPHARYNGITIS
     Route: 048
     Dates: start: 20091214, end: 20091221
  13. LEVOTRON [Concomitant]
     Indication: PROPHYLAXIS
  14. PENIRAMIN [Concomitant]
     Indication: NASOPHARYNGITIS
     Route: 048
     Dates: start: 20100111, end: 20100928
  15. PENIRAMIN [Concomitant]
     Indication: PROPHYLAXIS
  16. GASTER TAB [Concomitant]
     Indication: PROPHYLAXIS AGAINST GASTROINTESTINAL ULCER
     Route: 048
     Dates: start: 20100302, end: 20100302
  17. STOGAR [Concomitant]
     Indication: PROPHYLAXIS AGAINST GASTROINTESTINAL ULCER
     Dates: start: 20100310, end: 20100317
  18. MUCOTRA [Concomitant]
     Indication: PROPHYLAXIS AGAINST GASTROINTESTINAL ULCER
     Route: 048
     Dates: start: 20100317
  19. AMOXAPEN [Concomitant]
     Indication: PROPHYLAXIS
     Route: 048
     Dates: start: 20100517, end: 20100524
  20. AMOXAPEN [Concomitant]
     Indication: NASOPHARYNGITIS
  21. TASENOL ER [Concomitant]
     Indication: PROPHYLAXIS
     Route: 048
     Dates: start: 20101124, end: 20101130
  22. TASENOL ER [Concomitant]
     Indication: NASOPHARYNGITIS
  23. DAEWON CODEINE PHOSPHATE [Concomitant]
     Indication: PROPHYLAXIS
     Route: 048
     Dates: start: 20101124, end: 20101130
  24. DAEWON CODEINE PHOSPHATE [Concomitant]
     Indication: NASOPHARYNGITIS

REACTIONS (3)
  - Radius fracture [Recovered/Resolved]
  - Onychomycosis [Recovered/Resolved]
  - Herpes zoster [Recovered/Resolved]
